FAERS Safety Report 6068670-2 (Version None)
Quarter: 2009Q1

REPORT INFORMATION
  Report Type: 
  Country: None (occurrence: None)
  Receive Date: 20090206
  Receipt Date: 20090128
  Transmission Date: 20090719
  Serious: Yes (Other)
  Sender: FDA-Public Use
  Company Number: B0361598A

PATIENT
  Age: 37 Year
  Sex: Female

DRUGS (4)
  1. PAROXETINE HCL [Suspect]
     Route: 065
     Dates: start: 19970429
  2. DIAZEPAM [Concomitant]
     Dates: start: 20020911
  3. VITAMIN [Concomitant]
  4. PROPRANOLOL [Concomitant]

REACTIONS (13)
  - ANXIETY [None]
  - DEPRESSED MOOD [None]
  - DIZZINESS [None]
  - NAUSEA [None]
  - PANIC ATTACK [None]
  - PANIC REACTION [None]
  - PARANOIA [None]
  - PHOTOSENSITIVITY REACTION [None]
  - PREGNANCY [None]
  - PURPURA [None]
  - SLEEP DISORDER [None]
  - SUICIDAL IDEATION [None]
  - WITHDRAWAL SYNDROME [None]
